FAERS Safety Report 10886160 (Version 1)
Quarter: 2015Q1

REPORT INFORMATION
  Report Type: Spontaneous
  Country: DE (occurrence: None)
  Receive Date: 20150302
  Receipt Date: 20150302
  Transmission Date: 20150721
  Serious: Yes (Death, Hospitalization)
  Sender: FDA-Public Use
  Company Number: ABR_02065_2015

PATIENT
  Age: 25 Year
  Sex: Male

DRUGS (2)
  1. CANNABIS (CANNABIS) [Suspect]
     Active Substance: CANNABIS SATIVA SUBSP. INDICA TOP
     Dosage: DF
  2. AMPHETAMINE (AMPHETAMINE) [Suspect]
     Active Substance: AMPHETAMINE
     Dosage: DF

REACTIONS (14)
  - Red blood cell count increased [None]
  - CSF glucose decreased [None]
  - Brain abscess [None]
  - Eosinophilia [None]
  - Fusobacterium infection [None]
  - Drug abuse [None]
  - Brain herniation [None]
  - CSF lymphocyte count increased [None]
  - CSF protein increased [None]
  - CSF granulocyte count abnormal [None]
  - CSF lactate increased [None]
  - Embolism arterial [None]
  - General physical health deterioration [None]
  - Brain death [None]
